FAERS Safety Report 4433297-2 (Version None)
Quarter: 2004Q3

REPORT INFORMATION
  Report Type: 
  Country: None (occurrence: None)
  Receive Date: 20040819
  Receipt Date: 20040809
  Transmission Date: 20050211
  Serious: Yes (Hospitalization, Other)
  Sender: FDA-Public Use
  Company Number: 600680

PATIENT
  Age: 13 Year
  Sex: Male

DRUGS (3)
  1. HEMOFIL M [Suspect]
     Indication: FACTOR VIII DEFICIENCY
     Dosage: 1500 IU; PRN; INTRAVENOUS
     Route: 042
     Dates: start: 20010415, end: 20020304
  2. HELIXATE [Suspect]
     Indication: FACTOR VIII DEFICIENCY
     Dosage: 1000 IU; PRN; INTRAVENOUS
     Route: 042
     Dates: start: 20020403, end: 20030211
  3. KOGENATE [Suspect]
     Indication: FACTOR VIII DEFICIENCY
     Dosage: 1000 IU; INTRAVENOUS
     Route: 042
     Dates: start: 19980223, end: 20000415

REACTIONS (3)
  - ANTI FACTOR VIII ANTIBODY POSITIVE [None]
  - COAGULATION FACTOR VIII LEVEL DECREASED [None]
  - DRUG EFFECT DECREASED [None]
